FAERS Safety Report 21776789 (Version 3)
Quarter: 2025Q3

REPORT INFORMATION
  Report Type: Spontaneous
  Country: US (occurrence: US)
  Receive Date: 20221226
  Receipt Date: 20250827
  Transmission Date: 20251020
  Serious: No
  Sender: AMGEN
  Company Number: US-AMGEN-USASP2022220789

PATIENT
  Age: 23 Year
  Sex: Male

DRUGS (7)
  1. OTEZLA [Suspect]
     Active Substance: APREMILAST
     Indication: Psoriasis
     Dosage: 30 MILLIGRAM, BID
     Route: 048
     Dates: start: 20220408
  2. Alclometasona [Concomitant]
  3. TACROLIMUS [Concomitant]
     Active Substance: TACROLIMUS
  4. Flulaval quadrivalent [Concomitant]
     Dates: start: 2022
  5. PIMECROLIMUS [Concomitant]
     Active Substance: PIMECROLIMUS
  6. VTAMA [Concomitant]
     Active Substance: TAPINAROF
  7. ZORYVE [Concomitant]
     Active Substance: ROFLUMILAST

REACTIONS (9)
  - Psoriasis [Unknown]
  - Infection [Unknown]
  - Fatigue [Unknown]
  - Upper respiratory tract infection [Unknown]
  - Nasal congestion [Unknown]
  - Product dose omission issue [Unknown]
  - Sleep disorder [Unknown]
  - Therapy non-responder [Unknown]
  - Pain [Unknown]

NARRATIVE: CASE EVENT DATE: 20220101
